FAERS Safety Report 5387887-3 (Version None)
Quarter: 2007Q3

REPORT INFORMATION
  Report Type: 
  Country: None (occurrence: None)
  Receive Date: 20070716
  Receipt Date: 20060815
  Transmission Date: 20080115
  Serious: No
  Sender: FDA-Public Use
  Company Number: A0616475A

PATIENT
  Age: 42 Year
  Sex: Male

DRUGS (1)
  1. NICORETTE [Suspect]
     Dates: start: 20060811, end: 20060812

REACTIONS (3)
  - GINGIVAL PAIN [None]
  - HYPOAESTHESIA ORAL [None]
  - STOMACH DISCOMFORT [None]
